FAERS Safety Report 9263058 (Version 1)
Quarter: 2013Q2

REPORT INFORMATION
  Report Type: Spontaneous
  Country: US (occurrence: None)
  Receive Date: 20130426
  Receipt Date: 20130426
  Transmission Date: 20140414
  Serious: Yes (Other)
  Sender: FDA-Public Use
  Company Number: None

PATIENT
  Age: 4 Year
  Sex: Female
  Weight: 13.15 kg

DRUGS (1)
  1. SODIUM FLUORIDE [Suspect]
     Indication: DENTAL DISORDER PROPHYLAXIS
     Dosage: 1 TABLET -CHEWABLE-
     Route: 048
     Dates: start: 20130422, end: 20130424

REACTIONS (4)
  - Rash [None]
  - Rash [None]
  - Rash [None]
  - Urticaria [None]
